FAERS Safety Report 19163526 (Version 4)
Quarter: 2021Q4

REPORT INFORMATION
  Report Type: Spontaneous
  Country: JP (occurrence: JP)
  Receive Date: 20210421
  Receipt Date: 20211226
  Transmission Date: 20220303
  Serious: Yes (Other)
  Sender: FDA-Public Use
  Company Number: JP-BRISTOL-MYERS SQUIBB COMPANY-BMS-2020-079214

PATIENT
  Age: 66 Year
  Sex: Male

DRUGS (2)
  1. YERVOY [Suspect]
     Active Substance: IPILIMUMAB
     Indication: Metastatic renal cell carcinoma
     Dosage: UNK UNK, ONE TIME DOSE
     Route: 041
     Dates: start: 20200915, end: 20200915
  2. OPDIVO [Suspect]
     Active Substance: NIVOLUMAB
     Indication: Metastatic renal cell carcinoma
     Dosage: UNK, ONE TIME DOSE
     Route: 041
     Dates: start: 20200915, end: 20200915

REACTIONS (5)
  - Pancytopenia [Unknown]
  - Pyrexia [Recovering/Resolving]
  - Eosinophil count increased [Unknown]
  - Hepatic function abnormal [Recovered/Resolved]
  - Liver disorder [Recovered/Resolved]

NARRATIVE: CASE EVENT DATE: 20200920
